FAERS Safety Report 9503184 (Version 4)
Quarter: 2013Q4

REPORT INFORMATION
  Report Type: Spontaneous
  Country: US (occurrence: US)
  Receive Date: 20130906
  Receipt Date: 20131028
  Transmission Date: 20140711
  Serious: Yes (Other)
  Sender: FDA-Public Use
  Company Number: US-PFIZER INC-2013253598

PATIENT
  Age: 40 Year
  Sex: Female
  Weight: 65.76 kg

DRUGS (24)
  1. XELJANZ [Suspect]
     Indication: RHEUMATOID ARTHRITIS
     Dosage: 5 MG, 2X/DAY
     Route: 048
     Dates: start: 20130408
  2. XELJANZ [Suspect]
     Dosage: 5 MG, 2X/DAY
     Route: 048
     Dates: start: 20130408
  3. KLONOPIN [Concomitant]
     Dosage: 0.5MG
     Route: 048
  4. FLEXERIL [Concomitant]
     Dosage: 10 MG, UNK
     Route: 048
  5. TRAMADOL HYDROCHLORIDE [Concomitant]
     Dosage: 50 MG, UNK
     Route: 048
  6. LEFLUNOMIDE [Concomitant]
     Dosage: 10 MG, UNK
     Route: 048
  7. LEFLUNOMIDE [Concomitant]
     Dosage: 20 MG, 1X/DAY (Q 2 DAYS)
  8. METOPROLOL TARTRATE [Concomitant]
     Dosage: 100 MG, UNK
     Route: 048
  9. PROMETHAZINE [Concomitant]
     Dosage: 12.5 MG, UNK
     Route: 048
  10. PRILOSEC [Concomitant]
     Dosage: 20 MG, UNK
     Route: 048
  11. METHOTREXATE [Concomitant]
     Dosage: 50MG/2ML
     Route: 058
  12. METHOTREXATE [Concomitant]
     Dosage: 22.5 MG, WEEKLY
     Route: 058
  13. SUMATRIPTAN [Concomitant]
     Dosage: 100 MG, UNK
     Route: 048
  14. FOLATE [Concomitant]
     Dosage: UNK
     Route: 048
  15. CEVIMELINE [Concomitant]
     Dosage: 30 MG, 2X/DAY
     Route: 048
  16. PREDNISONE [Concomitant]
     Dosage: 55 MG, 1X/DAY
  17. PREDNISONE [Concomitant]
     Dosage: 50 MG, 1X/DAY
  18. PREDNISONE [Concomitant]
     Dosage: 15 MG, 1X/DAY
  19. OXYCODONE/APAP [Concomitant]
     Dosage: OXYCODONE HYDROCHLORIDE (5 MG), PARACETAMOL (325 MG), AS NEEDED
  20. ZOLPIDEM [Concomitant]
     Dosage: UNK
  21. TYLENOL [Concomitant]
     Dosage: UNK
  22. NUVIGIL [Concomitant]
     Dosage: UNK
  23. ZOFRAN [Concomitant]
     Dosage: UNK
  24. LORAZEPAM [Concomitant]
     Dosage: UNK

REACTIONS (2)
  - Hyperlipidaemia [Recovering/Resolving]
  - Upper respiratory tract infection [Not Recovered/Not Resolved]
